FAERS Safety Report 7334891-1 (Version None)
Quarter: 2011Q1

REPORT INFORMATION
  Report Type: 
  Country: None (occurrence: None)
  Receive Date: 20110307
  Receipt Date: 20110224
  Transmission Date: 20110831
  Serious: Yes (Hospitalization)
  Sender: FDA-Public Use
  Company Number: JP-ROCHE-645664

PATIENT
  Sex: Female
  Weight: 75 kg

DRUGS (36)
  1. TOCILIZUMAB [Suspect]
     Indication: RHEUMATOID ARTHRITIS
     Route: 041
     Dates: start: 20090706, end: 20090706
  2. TAKEPRON [Suspect]
     Indication: REFLUX OESOPHAGITIS
     Route: 048
  3. PREDNISOLONE [Suspect]
     Dosage: FORM: PERORAL AGENT.
     Route: 048
     Dates: start: 20091005, end: 20091029
  4. PROGRAF [Concomitant]
     Route: 048
  5. NEUROTROPIN [Concomitant]
     Route: 048
  6. RIVOTRIL [Concomitant]
     Route: 048
  7. REFLEX [Concomitant]
     Dosage: DOSAGE IS UNCERTAIN
     Route: 048
  8. LYRICA [Concomitant]
     Dosage: DOSAGE IS UNCERTAIN
     Route: 048
  9. TOCILIZUMAB [Suspect]
     Route: 041
     Dates: start: 20091030, end: 20091030
  10. BUFFERIN [Suspect]
     Indication: ANGINA PECTORIS
     Route: 048
  11. ISCOTIN [Concomitant]
     Route: 048
  12. HOCHU-EKKI-TO [Concomitant]
     Dosage: FORM: PERORAL AGENT.
     Route: 048
  13. TOCILIZUMAB [Suspect]
     Route: 041
     Dates: start: 20091124, end: 20091124
  14. TOCILIZUMAB [Suspect]
     Route: 041
     Dates: start: 20091222
  15. PREDNISOLONE [Suspect]
     Dosage: FORM: PERORAL AGENT.
     Route: 048
     Dates: start: 20091030, end: 20091123
  16. BREDININ [Concomitant]
     Route: 048
  17. URSO 250 [Concomitant]
     Dosage: FORM: PERORAL AGENT.
     Route: 048
  18. TOCILIZUMAB [Suspect]
     Route: 041
     Dates: start: 20090908, end: 20090908
  19. LOXONIN [Suspect]
     Indication: RHEUMATOID ARTHRITIS
     Dosage: DOSE FORM : PERORAL AGENT.
     Route: 048
  20. PREDNISOLONE [Suspect]
     Route: 048
     Dates: start: 20091124
  21. CONIEL [Concomitant]
     Route: 048
  22. HIRNAMIN [Concomitant]
     Dosage: DOSAGE IS UNCERTAIN
     Route: 048
  23. TOCILIZUMAB [Suspect]
     Route: 041
     Dates: start: 20090811, end: 20090811
  24. CYTOTEC [Concomitant]
     Route: 048
  25. PYDOXAL [Concomitant]
     Route: 048
  26. RESLIN [Concomitant]
     Route: 048
  27. EURODIN [Concomitant]
     Dosage: DOSAGE IS UNCERTAIN.
     Route: 048
  28. TOCILIZUMAB [Suspect]
     Route: 041
     Dates: start: 20091005, end: 20091005
  29. PREDNISOLONE [Suspect]
     Indication: RHEUMATOID ARTHRITIS
     Dosage: DOSE FORM : PERORAL AGENT.
     Route: 048
     Dates: end: 20090907
  30. PREDNISOLONE [Suspect]
     Dosage: FORM: PERORAL AGENT.
     Route: 048
     Dates: start: 20090908, end: 20091004
  31. CALONAL [Concomitant]
     Dosage: FORM: PERORAL AGENT.
     Route: 048
  32. GABAPEN [Concomitant]
     Route: 048
  33. TOLEDOMIN [Concomitant]
     Route: 048
  34. FOSAMAX [Concomitant]
     Dosage: DRUG NAME REPORTED AS FOSAMAC 35 MG
     Route: 048
  35. GANATON [Concomitant]
     Route: 048
  36. KETOPROFEN [Concomitant]
     Dosage: DOSE FORM TAPE
     Route: 061

REACTIONS (1)
  - MELAENA [None]
